FAERS Safety Report 10236171 (Version 1)
Quarter: 2014Q1

REPORT INFORMATION
  Report Type: Spontaneous
  Country: US (occurrence: None)
  Receive Date: 20140306
  Receipt Date: 20140306
  Transmission Date: 20141002
  Serious: Yes (Other)
  Sender: FDA-Public Use
  Company Number: 163-21880-13111595

PATIENT
  Age: 48 Year
  Sex: Female

DRUGS (3)
  1. REVLIMID ( LENALIDOMIDE)  (25 MILLIGRAM, CAPSULES) [Suspect]
     Indication: PARAPROTEINAEMIA
     Dosage: 25 MG, 21 IN 21 D, PO
     Route: 048
     Dates: start: 20131002
  2. REVLIMID ( LENALIDOMIDE)  (25 MILLIGRAM, CAPSULES) [Suspect]
     Indication: PLASMA CELL MYELOMA
     Dosage: 25 MG, 21 IN 21 D, PO
     Route: 048
     Dates: start: 20131002
  3. DEXAMETHASONE ( DEXAMETHASONE) ( UNKNOWN) [Concomitant]

REACTIONS (1)
  - Thrombophlebitis superficial [None]
